FAERS Safety Report 6305957-X (Version None)
Quarter: 2009Q3

REPORT INFORMATION
  Report Type: 
  Country: None (occurrence: None)
  Receive Date: 20090812
  Receipt Date: 20090803
  Transmission Date: 20100115
  Serious: Yes (Hospitalization, Other)
  Sender: FDA-Public Use
  Company Number: US-AMGEN-QUU358510

PATIENT
  Sex: Female

DRUGS (3)
  1. ENBREL [Suspect]
     Indication: RHEUMATOID ARTHRITIS
     Route: 058
     Dates: start: 20050501
  2. PLAQUENIL [Concomitant]
  3. METHOTREXATE [Concomitant]
     Route: 048

REACTIONS (9)
  - ABASIA [None]
  - ARTHRALGIA [None]
  - CHONDROPATHY [None]
  - GAIT DISTURBANCE [None]
  - HYPOAESTHESIA [None]
  - KNEE ARTHROPLASTY [None]
  - MUSCULAR WEAKNESS [None]
  - PAIN [None]
  - UPPER LIMB FRACTURE [None]
